FAERS Safety Report 13018975 (Version 1)
Quarter: 2016Q4

REPORT INFORMATION
  Report Type: Spontaneous
  Country: CN (occurrence: CN)
  Receive Date: 20161212
  Receipt Date: 20161212
  Transmission Date: 20170207
  Serious: Yes (Other)
  Sender: FDA-Public Use
  Company Number: CN-PFIZER INC-2016571629

PATIENT
  Age: 60 Year
  Sex: Male
  Weight: 78 kg

DRUGS (5)
  1. BETALOC /00376902/ [Suspect]
     Active Substance: METOPROLOL TARTRATE
     Indication: TACHYCARDIA
     Dosage: 6.25 MG, 1X/DAY
     Route: 048
     Dates: start: 20161009, end: 20161018
  2. ENALAPRIL [Suspect]
     Active Substance: ENALAPRIL
     Dosage: UNK
     Route: 048
  3. YISU [Suspect]
     Active Substance: BUFLOMEDIL HYDROCHLORIDE
     Indication: HYPERTENSION
     Dosage: 1.25 MG, 1X/DAY
     Route: 048
     Dates: start: 20161009, end: 20161018
  4. ASPIRIN (E.C.) [Suspect]
     Active Substance: ASPIRIN
     Indication: COAGULOPATHY
     Dosage: 100 MG, 1X/DAY
     Route: 048
     Dates: start: 20161009, end: 20161018
  5. LIPITOR [Suspect]
     Active Substance: ATORVASTATIN CALCIUM
     Indication: HYPERLIPIDAEMIA
     Dosage: 200 MG, 1X/DAY
     Route: 048
     Dates: start: 20161009, end: 20161018

REACTIONS (3)
  - Dysbacteriosis [None]
  - Dysbacteriosis [Unknown]
  - Diarrhoea [Recovering/Resolving]

NARRATIVE: CASE EVENT DATE: 20161012
